FAERS Safety Report 13954061 (Version 1)
Quarter: 2017Q3

REPORT INFORMATION
  Report Type: Spontaneous
  Country: US (occurrence: US)
  Receive Date: 20170911
  Receipt Date: 20170911
  Transmission Date: 20171128
  Serious: Yes (Other)
  Sender: FDA-Public Use
  Company Number: US-WEST-WARD PHARMACEUTICALS CORP.-US-H14001-17-03313

PATIENT
  Age: 6 Year
  Sex: Male

DRUGS (7)
  1. MORPHINE [Interacting]
     Active Substance: MORPHINE
     Route: 041
  2. DIFLUOROMETHYLORNITHINE [Interacting]
     Active Substance: EFLORNITHINE
     Indication: NEUROBLASTOMA
     Route: 065
  3. GABAPENTIN. [Suspect]
     Active Substance: GABAPENTIN
     Indication: PAIN
     Route: 065
  4. DINUTUXIMAB [Concomitant]
     Active Substance: DINUTUXIMAB
     Indication: NEUROBLASTOMA
     Route: 065
  5. MORPHINE [Suspect]
     Active Substance: MORPHINE
     Indication: PAIN
     Route: 040
  6. MORPHINE [Interacting]
     Active Substance: MORPHINE
     Route: 041
  7. MORPHINE [Interacting]
     Active Substance: MORPHINE
     Route: 040

REACTIONS (6)
  - Potentiating drug interaction [Unknown]
  - Urinary retention [Unknown]
  - Drug interaction [Unknown]
  - Sedation complication [Unknown]
  - Bradypnoea [Unknown]
  - Hypoxia [Unknown]
